FAERS Safety Report 16466751 (Version 1)
Quarter: 2019Q2

REPORT INFORMATION
  Report Type: Report from Study
  Country: None (occurrence: ZA)
  Receive Date: 20190623
  Receipt Date: 20190623
  Transmission Date: 20190711
  Serious: Yes (Other)
  Sender: FDA-Public Use
  Company Number: ZA-ABBVIE-19K-143-2826828-00

PATIENT
  Sex: Female

DRUGS (1)
  1. HUMIRA [Suspect]
     Active Substance: ADALIMUMAB
     Indication: RHEUMATOID ARTHRITIS
     Route: 058
     Dates: start: 201903

REACTIONS (3)
  - Pain [Unknown]
  - Scar [Recovering/Resolving]
  - Nerve compression [Recovering/Resolving]

NARRATIVE: CASE EVENT DATE: 2019
